FAERS Safety Report 15854015 (Version 1)
Quarter: 2019Q1

REPORT INFORMATION
  Report Type: Spontaneous
  Country: US (occurrence: US)
  Receive Date: 20190121
  Receipt Date: 20190121
  Transmission Date: 20190417
  Serious: No
  Sender: FDA-Public Use
  Company Number: None

PATIENT
  Sex: Female

DRUGS (7)
  1. NINLARO [Suspect]
     Active Substance: IXAZOMIB CITRATE
     Indication: PLASMA CELL MYELOMA
  2. PROCHLORPERAZINE 10MG TABLETS [Concomitant]
  3. LIDOCAINE/PRILOCAINE CREAM 2.5-2.5% [Concomitant]
  4. DEXAMETHASONE 4MG TABLETS [Concomitant]
  5. OXYCODONE 5MG TABLETS [Concomitant]
  6. VALACYCLOVIR 500MG TABLETS [Concomitant]
     Active Substance: VALACYCLOVIR HYDROCHLORIDE
  7. XANAX 0.25MG TABLETS [Concomitant]

REACTIONS (3)
  - Swelling [None]
  - Fatigue [None]
  - Muscle spasms [None]
